FAERS Safety Report 5959692-8 (Version None)
Quarter: 2008Q4

REPORT INFORMATION
  Report Type: 
  Country: None (occurrence: None)
  Receive Date: 20081120
  Receipt Date: 20081112
  Transmission Date: 20090506
  Serious: Yes (Hospitalization)
  Sender: FDA-Public Use
  Company Number: US-ALLERGAN-199907038

PATIENT
  Sex: Male

DRUGS (1)
  1. ALPHAGAN [Suspect]
     Indication: PROPHYLAXIS
     Dosage: 1GTT, QD
     Route: 047
     Dates: start: 19990517, end: 19990517

REACTIONS (4)
  - APNOEA [None]
  - LETHARGY [None]
  - PALLOR [None]
  - RESPIRATORY RATE DECREASED [None]
